FAERS Safety Report 5511045-2 (Version None)
Quarter: 2007Q4

REPORT INFORMATION
  Report Type: 
  Country: None (occurrence: None)
  Receive Date: 20071031
  Receipt Date: 20071008
  Transmission Date: 20080405
  Serious: Yes (Other)
  Sender: FDA-Public Use
  Company Number: AEJPN200700208

PATIENT
  Age: 29 Month
  Sex: Male

DRUGS (2)
  1. IGIV S/D (MANUFACTURER UNKNOWN) (IMMUNE GLOBULIN INTRAVENOUS (HUMAN), [Suspect]
     Indication: KAWASAKI'S DISEASE
  2. ASPIRIN [Concomitant]

REACTIONS (3)
  - DRUG RASH WITH EOSINOPHILIA AND SYSTEMIC SYMPTOMS [None]
  - HEPATIC FUNCTION ABNORMAL [None]
  - HUMAN HERPES VIRUS 6 SEROLOGY POSITIVE [None]
